FAERS Safety Report 6047027-4 (Version None)
Quarter: 2009Q1

REPORT INFORMATION
  Report Type: 
  Country: None (occurrence: None)
  Receive Date: 20090122
  Receipt Date: 20090113
  Transmission Date: 20090719
  Serious: Yes (Other)
  Sender: FDA-Public Use
  Company Number: US-TYCO HEALTHCARE/MALLINCKRODT-T200801688

PATIENT
  Sex: Female

DRUGS (17)
  1. OPTIMARK [Suspect]
     Indication: SCAN
     Dosage: UNK, SINGLE
     Route: 042
  2. OMNISCAN [Suspect]
     Indication: NUCLEAR MAGNETIC RESONANCE IMAGING
     Dosage: 30 (UNIT NOT PROVIDED)
     Dates: start: 20061004, end: 20061004
  3. MAGNEVIST [Suspect]
  4. MULTIHANCE [Suspect]
  5. PROHANCE [Suspect]
  6. COUMADIN [Concomitant]
     Indication: THROMBOSIS
     Dosage: 2.5 TO 5 MG/DAY
     Dates: start: 20050101
  7. EPOGEN [Concomitant]
     Indication: ANAEMIA
     Dosage: UNK
     Dates: start: 20050101
  8. VITAMINS NOS [Concomitant]
     Indication: VITAMIN SUPPLEMENTATION
     Dosage: UNK
     Dates: start: 20050101
  9. IRON [Concomitant]
     Indication: ANAEMIA
     Dosage: UNK
     Dates: start: 20050101
  10. DILTIAZEM [Concomitant]
     Indication: SCLERODERMA
     Dosage: 60 MG, TID
     Dates: start: 20070101
  11. DILTIAZEM [Concomitant]
     Indication: NEPHROGENIC SYSTEMIC FIBROSIS
  12. DILTIAZEM [Concomitant]
     Indication: ATRIAL FIBRILLATION
  13. ZOLOFT [Concomitant]
     Indication: ANTIDEPRESSANT THERAPY
     Dosage: 50 MG, QD
  14. WELLBUTRIN [Concomitant]
     Indication: ANTIDEPRESSANT THERAPY
     Dosage: 25 MG, QD
  15. PREVACID [Concomitant]
     Indication: ANTACID THERAPY
     Dosage: ONE PILL PER DAY
  16. VANCOMYCIN HYDROCHLORIDE [Concomitant]
     Indication: INFECTION
     Dosage: UNK
     Dates: start: 20060101, end: 20070101
  17. LISINOPRIL [Concomitant]
     Indication: HYPERTENSION
     Dosage: UNK
     Dates: start: 20050101, end: 20060101

REACTIONS (2)
  - NEPHROGENIC SYSTEMIC FIBROSIS [None]
  - VISUAL IMPAIRMENT [None]
